FAERS Safety Report 7097844-7 (Version None)
Quarter: 2010Q4

REPORT INFORMATION
  Report Type: 
  Country: None (occurrence: None)
  Receive Date: 20101112
  Receipt Date: 20100602
  Transmission Date: 20110411
  Serious: Yes (Hospitalization)
  Sender: FDA-Public Use
  Company Number: US-BAYER-201012903NA

PATIENT
  Age: 23 Year
  Sex: Female
  Weight: 68 kg

DRUGS (26)
  1. YAZ [Suspect]
     Indication: PREMENSTRUAL SYNDROME
     Route: 048
     Dates: start: 20070501
  2. YASMIN [Suspect]
     Indication: PREMENSTRUAL SYNDROME
     Route: 048
     Dates: start: 20080101, end: 20080401
  3. NAPROXEN [Concomitant]
     Dates: start: 20000101
  4. OXYCO/APAP [Concomitant]
     Dates: start: 20000101
  5. REPLIVA [Concomitant]
     Dates: start: 20000101
  6. PHENAZOPYRIDINE HCL TAB [Concomitant]
     Dates: start: 20000101
  7. AMOX/K CLAV [Concomitant]
     Dates: start: 20000101
  8. PEDOX-S [Concomitant]
     Dates: start: 20000101
  9. CINDAMYCIN [Concomitant]
     Dates: start: 20000101
  10. EQ SUPHEDRINE [Concomitant]
     Dates: start: 20000101
  11. CITALOPRAM HYDROBROMIDE [Concomitant]
     Dates: start: 20000101
  12. PREDNISONE [Concomitant]
     Dates: start: 20000101
  13. PROMETHAZINE [Concomitant]
     Dates: start: 20000101
  14. ATUSS DS SUS [Concomitant]
     Dates: start: 20000101
  15. GRIS-PEG [Concomitant]
     Dates: start: 20000101
  16. AMOXICILLIN [Concomitant]
     Indication: POSTOPERATIVE CARE
     Dates: start: 20000101
  17. ANTIPY/BENZO OTIC DROP [Concomitant]
     Dates: start: 20000101
  18. CIPRODEX OTIC [Concomitant]
     Dates: start: 20000101
  19. ASCORBIC ACID [Concomitant]
     Dates: start: 20090101, end: 20100101
  20. EXCEDRIN (MIGRAINE) [Concomitant]
  21. IBUPROFEN [Concomitant]
  22. LORTAB [Concomitant]
     Indication: ARTHRALGIA
     Dates: start: 20080101
  23. PERCOCET [Concomitant]
     Indication: ARTHRALGIA
     Dates: start: 20080101
  24. VICODIN [Concomitant]
     Indication: PROCEDURAL PAIN
     Dates: start: 20060101
  25. DARVOCET [Concomitant]
     Indication: PROCEDURAL PAIN
     Dates: start: 20070101
  26. IRON PILL [Concomitant]
     Indication: ANAEMIA
     Route: 048

REACTIONS (7)
  - ABDOMINAL PAIN UPPER [None]
  - BILIARY COLIC [None]
  - BILIARY DILATATION [None]
  - CHOLECYSTITIS [None]
  - CHOLELITHIASIS [None]
  - NAUSEA [None]
  - PANCREATITIS [None]
